FAERS Safety Report 10555277 (Version 2)
Quarter: 2014Q4

REPORT INFORMATION
  Report Type: Spontaneous
  Country: US (occurrence: US)
  Receive Date: 20141030
  Receipt Date: 20141030
  Transmission Date: 20150529
  Serious: Yes (Hospitalization, Other)
  Sender: FDA-Public Use
  Company Number: US-TARO-2014TAR00431

PATIENT
  Age: 71 Year
  Sex: Male
  Weight: 73 kg

DRUGS (13)
  1. METOPROLOL [Concomitant]
     Active Substance: METOPROLOL
     Dosage: 25 MG, UNK
  2. TRICOR [Concomitant]
     Active Substance: FENOFIBRATE
     Dosage: 145 MG, UNK
  3. MOTRIN [Concomitant]
     Active Substance: IBUPROFEN
     Dosage: 20 MG, UNK
  4. AMIODARONE [Concomitant]
     Active Substance: AMIODARONE
     Dosage: 200 MG, UNK
  5. NORVASC [Concomitant]
     Active Substance: AMLODIPINE BESYLATE
     Dosage: 5 MG, UNK
  6. LIPITOR [Concomitant]
     Active Substance: ATORVASTATIN CALCIUM
     Dosage: 40 MG, UNK
  7. FLUOROURACIL TOPICAL CREAM USP 5% [Suspect]
     Active Substance: FLUOROURACIL
     Indication: PENILE CANCER
     Dosage: UNK, 2X/DAY
     Route: 061
     Dates: start: 201409, end: 201409
  8. ASA [Concomitant]
     Active Substance: ASPIRIN
     Dosage: 81 MG, UNK
  9. VICODIN [Concomitant]
     Active Substance: ACETAMINOPHEN\HYDROCODONE BITARTRATE
     Dosage: UNK
  10. PLAVIX [Concomitant]
     Active Substance: CLOPIDOGREL BISULFATE
     Dosage: 75 MG, UNK
  11. COZAR [Concomitant]
     Dosage: 50 MG, UNK
  12. KENALOG [Concomitant]
     Active Substance: TRIAMCINOLONE ACETONIDE
     Dosage: 0.1 UNK, UNK
     Route: 061
  13. GLIMEPIZIDE [Concomitant]
     Dosage: 1 MG, UNK

REACTIONS (8)
  - Wound secretion [Not Recovered/Not Resolved]
  - Application site erosion [Unknown]
  - Penile pain [Not Recovered/Not Resolved]
  - Scrotal pain [Unknown]
  - Penile ulceration [Not Recovered/Not Resolved]
  - Erythema [Unknown]
  - Genital discomfort [Not Recovered/Not Resolved]
  - Application site burn [Unknown]

NARRATIVE: CASE EVENT DATE: 201409
